FAERS Safety Report 14758768 (Version 2)
Quarter: 2018Q2

REPORT INFORMATION
  Report Type: Spontaneous
  Country: JP (occurrence: JP)
  Receive Date: 20180413
  Receipt Date: 20180521
  Transmission Date: 20180711
  Serious: Yes (Other)
  Sender: FDA-Public Use
  Company Number: JP-009507513-1804JPN000920J

PATIENT
  Age: 7 Decade
  Sex: Female

DRUGS (6)
  1. FOSAMAC TABLETS 35MG [Suspect]
     Active Substance: ALENDRONATE SODIUM
     Dosage: UNK UNK, QW
     Route: 048
     Dates: start: 20180513
  2. WARFARIN [Concomitant]
     Active Substance: WARFARIN
     Dosage: UNK
     Route: 048
  3. FOSAMAC TABLETS 35MG [Suspect]
     Active Substance: ALENDRONATE SODIUM
     Indication: BONE DENSITY DECREASED
     Dosage: 35 MG, QW
     Route: 048
     Dates: start: 2008, end: 2009
  4. FOSAMAC TABLETS 35MG [Suspect]
     Active Substance: ALENDRONATE SODIUM
     Dosage: UNK UNK, QW
     Route: 048
     Dates: start: 2018, end: 20180429
  5. SELBEX [Concomitant]
     Active Substance: TEPRENONE
     Dosage: UNK
     Route: 065
  6. FOSAMAC TABLETS 35MG [Suspect]
     Active Substance: ALENDRONATE SODIUM
     Dosage: UNK UNK, QW
     Route: 048
     Dates: start: 2016, end: 2018

REACTIONS (7)
  - Compression fracture [Unknown]
  - Device failure [Unknown]
  - Dyspepsia [Unknown]
  - Abdominal discomfort [Unknown]
  - Compression fracture [Unknown]
  - Spinal compression fracture [Unknown]
  - Toothache [Unknown]

NARRATIVE: CASE EVENT DATE: 2009
